FAERS Safety Report 12552807 (Version 2)
Quarter: 2016Q3

REPORT INFORMATION
  Report Type: Spontaneous
  Country: US (occurrence: US)
  Receive Date: 20160713
  Receipt Date: 20160714
  Transmission Date: 20161109
  Serious: No
  Sender: FDA-Public Use
  Company Number: US-009507513-1607USA003889

PATIENT
  Age: 60 Year
  Sex: Male

DRUGS (2)
  1. SYLATRON [Suspect]
     Active Substance: PEGINTERFERON ALFA-2B
     Indication: MALIGNANT MELANOMA
     Dosage: 0.3 ML, ONCE
     Route: 058
     Dates: start: 20160707, end: 20160707
  2. SYLATRON [Suspect]
     Active Substance: PEGINTERFERON ALFA-2B
     Dosage: 0.3 ML, ONCE
     Route: 058
     Dates: start: 201607, end: 201607

REACTIONS (2)
  - Injection site haemorrhage [Unknown]
  - Drug administration error [Unknown]

NARRATIVE: CASE EVENT DATE: 20160707
